FAERS Safety Report 23307732 (Version 3)
Quarter: 2024Q1

REPORT INFORMATION
  Report Type: Report from Study
  Country: ES (occurrence: ES)
  Receive Date: 20231218
  Receipt Date: 20240103
  Transmission Date: 20240409
  Serious: No
  Sender: FDA-Public Use
  Company Number: ES-PFIZER INC-PV202300201976

PATIENT
  Age: 80 Year
  Sex: Male

DRUGS (3)
  1. NIRMATRELVIR\RITONAVIR [Interacting]
     Active Substance: NIRMATRELVIR\RITONAVIR
     Indication: COVID-19 treatment
     Dosage: 150 MG OF NIRMATRELVIR PLUS 100 MG OF RITONAVIR
  2. TACROLIMUS [Interacting]
     Active Substance: TACROLIMUS
     Indication: Renal transplant
     Dosage: 5 MG, DAILY, BASELINE, EXTENDED RELEASE
  3. TACROLIMUS [Interacting]
     Active Substance: TACROLIMUS
     Dosage: 5 MG, DAILY, REINTRODUCTION, DAY 6, EXTENDED RELEASE

REACTIONS (1)
  - Drug interaction [Unknown]
